FAERS Safety Report 7118416-1 (Version None)
Quarter: 2010Q4

REPORT INFORMATION
  Report Type: 
  Country: None (occurrence: None)
  Receive Date: 20101123
  Receipt Date: 20101112
  Transmission Date: 20110411
  Serious: Yes (Death, Hospitalization)
  Sender: FDA-Public Use
  Company Number: JP-GENZYME-THYM-1001538

PATIENT
  Sex: Male
  Weight: 57 kg

DRUGS (19)
  1. THYMOGLOBULIN [Suspect]
     Indication: BONE MARROW CONDITIONING REGIMEN
     Dosage: 70 MG, QD
     Route: 042
     Dates: start: 20090611, end: 20090614
  2. URSODIOL [Concomitant]
     Indication: PROPHYLAXIS
     Dosage: UNK
     Route: 065
     Dates: start: 20090610, end: 20090704
  3. CIPROFLOXACIN HYDROCHLORIDE [Concomitant]
     Indication: PROPHYLAXIS
     Dosage: UNK
     Route: 065
     Dates: start: 20090610, end: 20090627
  4. ACYCLOVIR [Concomitant]
     Indication: PROPHYLAXIS
     Dosage: UNK
     Route: 065
     Dates: start: 20090610, end: 20090704
  5. ACYCLOVIR [Concomitant]
     Dosage: UNK
     Route: 065
     Dates: start: 20090716, end: 20090923
  6. LOXOPROFEN SODIUM [Concomitant]
     Indication: PREMEDICATION
     Dosage: UNK
     Route: 065
     Dates: start: 20090612, end: 20090618
  7. LOXOPROFEN SODIUM [Concomitant]
     Indication: PROPHYLAXIS
     Dosage: UNK
     Route: 065
     Dates: start: 20090624, end: 20090702
  8. AMPHOTERICIN B [Concomitant]
     Indication: PROPHYLAXIS
     Dosage: UNK
     Route: 065
     Dates: start: 20090703, end: 20090709
  9. ITRACONAZOLE [Concomitant]
     Indication: PROPHYLAXIS
     Dosage: UNK
     Route: 065
     Dates: start: 20090704, end: 20091211
  10. SULFAMETHOPRIM [Concomitant]
     Indication: PROPHYLAXIS
     Dosage: UNK
     Route: 065
     Dates: start: 20090729, end: 20091205
  11. TACROLIMUS [Concomitant]
     Indication: PRODUCT USED FOR UNKNOWN INDICATION
     Dosage: UNK
     Route: 065
     Dates: start: 20090615, end: 20091128
  12. FLUDARABINE [Concomitant]
     Indication: PRODUCT USED FOR UNKNOWN INDICATION
     Dosage: UNK
     Route: 065
     Dates: start: 20090610, end: 20090612
  13. MELPHALAN HYDROCHLORIDE [Concomitant]
     Indication: PRODUCT USED FOR UNKNOWN INDICATION
     Dosage: UNK
     Route: 065
     Dates: start: 20090610, end: 20090610
  14. METHYLPREDNISOLONE SODIUM SUCCINATE [Concomitant]
     Indication: PREMEDICATION
     Dosage: UNK
     Route: 042
     Dates: start: 20090611, end: 20090627
  15. METHYLPREDNISOLONE SODIUM SUCCINATE [Concomitant]
     Dosage: UNK
     Route: 042
     Dates: start: 20090717, end: 20091002
  16. FILGRASTIM [Concomitant]
     Indication: BONE MARROW FAILURE
     Dosage: UNK
     Route: 065
     Dates: start: 20090621, end: 20090713
  17. MICAFUNGIN SODIUM [Concomitant]
     Indication: PROPHYLAXIS
     Dosage: UNK
     Route: 065
     Dates: start: 20090627, end: 20091203
  18. PLATELETS [Concomitant]
     Indication: PLATELET COUNT DECREASED
     Dosage: UNK
     Route: 065
     Dates: start: 20090611, end: 20100104
  19. RED BLOOD CELLS [Concomitant]
     Indication: RED BLOOD CELL COUNT DECREASED
     Route: 065

REACTIONS (5)
  - BRONCHOPULMONARY ASPERGILLOSIS [None]
  - EPSTEIN-BARR VIRUS ASSOCIATED LYMPHOPROLIFERATIVE DISORDER [None]
  - FUNGAL INFECTION [None]
  - HISTIOCYTOSIS HAEMATOPHAGIC [None]
  - MULTI-ORGAN FAILURE [None]
